FAERS Safety Report 9196289 (Version 1)
Quarter: 2013Q1

REPORT INFORMATION
  Report Type: Spontaneous
  Country: US (occurrence: None)
  Receive Date: 20120709
  Receipt Date: 20120709
  Transmission Date: 20140127
  Serious: No
  Sender: FDA-Public Use
  Company Number: 2012HGS-003492

PATIENT
  Age: 60 Year
  Sex: Female
  Weight: 105.69 kg

DRUGS (20)
  1. BENLYSTA [Suspect]
     Indication: SYSTEMIC LUPUS ERYTHEMATOSUS
     Dosage: 1 IN 28 DAYS.
     Route: 041
     Dates: start: 20120402
  2. AMBIEN CR (ZOLPIDEM TARTRATE)(ZOLPIDEM TARTRATE) [Concomitant]
     Dosage: 1 IN 1 D
  3. ASPIRIN (ACETYLSALICYLIC ACID) [Concomitant]
     Dosage: 1 IN 1 D
  4. CALCIUM (CALCIUM)(CALCIUM) [Concomitant]
     Dosage: 2 IN 1 D
  5. CELEBREX (CELECOXIB)(CELECOXIB) [Concomitant]
     Dosage: 2 IN 1 D
  6. CENTRUM (CENTRUM/00554501) (VITAIMINS NOS, MINERALS NOS [Concomitant]
     Dosage: 1 IN 1 D
  7. CYMBALTA (DULOXETINE HYDROCHLORIDE)(DULOXETINE HYDROCHLORIDE) [Concomitant]
     Dosage: 1 IN 1 D
  8. HYDROCHLOROTHIAZIDE (HYDROCHLOROTHIAZIDE)(HYDROCHLOROTHIAZIDE) [Concomitant]
  9. LYRICA (PREGABALIN)(PREGABALIN) [Concomitant]
     Dosage: 2 IN 1 D
  10. METFORMIN (METFORMIN)(METFORMIN) [Concomitant]
     Dosage: 2 IN 1 D
  11. NASONEX (MOMETASONE FUROATE)(MOMETASONE FUROATE) [Concomitant]
     Dosage: AS REQUIRED
  12. PLAQUENIL (HYDROXYCHLOROQUINE SULFATE)(HYDROXYCHLOROQUINE SULFATE) [Concomitant]
     Dosage: 2 IN 1 D
  13. PREDNISONE (PREDNISONE)(PREDNISONE) [Concomitant]
     Dosage: 1 IN 1 D
  14. PROBIOTICS (PROBIOTICS) [Concomitant]
     Dosage: 1 IN 1 D
  15. SYNTHROID (LEVOTHYROXINE SODIUM)(LEVOTHYROXINE SODIUM) [Concomitant]
     Dosage: 1 IN 1 D
  16. TIZANIDINE (TIZANIDINE)(TIZANIDINE) [Concomitant]
     Dosage: 1 IN 1 D
  17. VITAMIN D2 (ERGOCALCIFEROL)(ERGOCALCIFEROL) [Concomitant]
  18. ZIAC (BISELECT/01166101) (HYDROCHLOROTHIAZIDE, BISOPROLOL FUMARATE)? [Concomitant]
  19. ZYRTEC D (CIRRUS)(PSEUDOEPHEDRINE HYDROCHLORIDE, CETIRIZINE HYDROCHLORIDE) [Concomitant]
     Dosage: 1 IN 1 D
  20. OXYCONTIN CR (OXYCODONE HYDROCHLORIDE)(OXYCODONE HYDROCHLORIDE) [Concomitant]
     Dosage: 2 IN 1 D

REACTIONS (1)
  - Headache [None]
